FAERS Safety Report 8272121-7 (Version None)
Quarter: 2012Q2

REPORT INFORMATION
  Report Type: 
  Country: None (occurrence: None)
  Receive Date: 20120410
  Receipt Date: 20120309
  Transmission Date: 20120825
  Serious: Yes (Other)
  Sender: FDA-Public Use
  Company Number: US-ASTRAZENECA-2012SE16767

PATIENT
  Age: 59 Year
  Sex: Female

DRUGS (5)
  1. VITAMIN B-12 [Concomitant]
  2. PROTONIX [Concomitant]
  3. SYNTHROID [Concomitant]
  4. LOMOTIL [Concomitant]
     Dosage: 2.5-0.025 MG AS REQUIRED
  5. VANDETANIB [Suspect]
     Indication: THYROID CANCER
     Route: 048

REACTIONS (2)
  - BLOOD PRESSURE INCREASED [None]
  - ELECTROCARDIOGRAM QT PROLONGED [None]
